FAERS Safety Report 6413000-7 (Version None)
Quarter: 2009Q4

REPORT INFORMATION
  Report Type: 
  Country: None (occurrence: None)
  Receive Date: 20091026
  Receipt Date: 20091021
  Transmission Date: 20100525
  Serious: Yes (Other)
  Sender: FDA-Public Use
  Company Number: US-ASTRAZENECA-2007UW03818

PATIENT
  Age: 610 Month
  Sex: Female
  Weight: 91.6 kg

DRUGS (29)
  1. SEROQUEL [Suspect]
     Indication: SCHIZOPHRENIA
     Route: 048
     Dates: start: 19980601
  2. SEROQUEL [Suspect]
     Indication: ANXIETY
     Route: 048
     Dates: start: 19980601
  3. SEROQUEL [Suspect]
     Dosage: 25-400MG
     Route: 048
     Dates: start: 20011005
  4. SEROQUEL [Suspect]
     Dosage: 25-400MG
     Route: 048
     Dates: start: 20011005
  5. GLUCOTROL XL [Concomitant]
     Route: 048
  6. NEXIUM [Concomitant]
     Route: 048
  7. METFORMIN [Concomitant]
     Route: 048
  8. TRAZODONE [Concomitant]
     Dosage: 50MG TO 150MG
     Route: 048
  9. BUSPAR [Concomitant]
     Dosage: 5MG TO 10MG
     Route: 048
  10. KENALOG IN ORABASE [Concomitant]
     Dosage: 1/4 INCH
     Route: 002
  11. PROMETHAZINE [Concomitant]
     Route: 048
  12. RISPERIDONE [Concomitant]
     Route: 048
  13. CYCLOBENZAPRINE [Concomitant]
     Route: 048
  14. METHOCARBAMOL [Concomitant]
     Route: 048
  15. AZITHROMYCIN [Concomitant]
     Route: 048
  16. ALBUTEROL [Concomitant]
     Dosage: 90MCG/ACT, EVERY 4 HOURS AS  NEEDED
  17. PROZAC [Concomitant]
     Dosage: 20MG TO 40MG
     Route: 048
  18. VALIUM [Concomitant]
     Route: 048
  19. STELAZINE [Concomitant]
     Route: 048
  20. ARTANE [Concomitant]
  21. ELAVIL [Concomitant]
  22. MAXZIDE [Concomitant]
     Route: 048
  23. BISACODYL [Concomitant]
     Dosage: 5 MG 2 TABS ONCE A DAY
     Route: 048
  24. SULINDAC [Concomitant]
     Route: 048
  25. LOVASTATIN [Concomitant]
     Route: 048
  26. GEODON [Concomitant]
     Dosage: 20 TO 80MG
     Route: 048
  27. PENICILLIN V [Concomitant]
     Route: 048
  28. MEPERIDINE [Concomitant]
     Route: 042
  29. MIDAZOLAM HCL [Concomitant]
     Route: 042

REACTIONS (6)
  - DIABETES MELLITUS INADEQUATE CONTROL [None]
  - DIABETIC GASTROPARESIS [None]
  - DIABETIC NEUROPATHY [None]
  - DIABETIC RETINOPATHY [None]
  - TYPE 2 DIABETES MELLITUS [None]
  - WEIGHT INCREASED [None]
